FAERS Safety Report 16225192 (Version 1)
Quarter: 2019Q2

REPORT INFORMATION
  Report Type: Spontaneous
  Country: GB (occurrence: GB)
  Receive Date: 20190422
  Receipt Date: 20190422
  Transmission Date: 20190711
  Serious: Yes (Disabling)
  Sender: FDA-Public Use
  Company Number: GB-TORRENT-00003402

PATIENT
  Age: 52 Year
  Sex: Male

DRUGS (2)
  1. PROPRANOLOL [Concomitant]
     Active Substance: PROPRANOLOL HYDROCHLORIDE
     Indication: PRODUCT USED FOR UNKNOWN INDICATION
     Dosage: UNKNOWN
  2. OLANZAPINE. [Suspect]
     Active Substance: OLANZAPINE
     Indication: MANIA
     Dosage: AT NIGHT?DRUG START PERIOD: 65?DAYS
     Route: 048
     Dates: start: 20130901, end: 20131115

REACTIONS (8)
  - Abnormal behaviour [Recovering/Resolving]
  - Agitation [Recovering/Resolving]
  - Pyrexia [Recovering/Resolving]
  - Coordination abnormal [Recovering/Resolving]
  - Hyperhidrosis [Recovering/Resolving]
  - Weight decreased [Recovering/Resolving]
  - Dystonia [Recovering/Resolving]
  - Tremor [Recovering/Resolving]

NARRATIVE: CASE EVENT DATE: 20131105
